FAERS Safety Report 4477546-3 (Version None)
Quarter: 2004Q4

REPORT INFORMATION
  Report Type: 
  Country: None (occurrence: None)
  Receive Date: 20041018
  Receipt Date: 20040223
  Transmission Date: 20050328
  Serious: Yes (Death, Hospitalization)
  Sender: FDA-Public Use
  Company Number: BE-AMGEN-US067988

PATIENT
  Sex: Male

DRUGS (3)
  1. ETANERCEPT [Suspect]
     Indication: RHEUMATOID ARTHRITIS
     Route: 058
     Dates: start: 20030626
  2. ETANERCEPT [Suspect]
     Route: 058
     Dates: start: 20030730, end: 20040109
  3. MEDROL [Concomitant]
     Dates: start: 19970101, end: 20040101

REACTIONS (17)
  - ALVEOLITIS ALLERGIC [None]
  - ARTHRALGIA [None]
  - BIOPSY LUNG ABNORMAL [None]
  - BRONCHITIS [None]
  - BRONCHOPNEUMONIA [None]
  - CRYPTOGENIC ORGANIZING PNEUMONIA [None]
  - CYTOMEGALOVIRUS INFECTION [None]
  - FEELING ABNORMAL [None]
  - IMMUNE SYSTEM DISORDER [None]
  - LUNG DISORDER [None]
  - LUNG INFILTRATION [None]
  - METABOLIC ACIDOSIS [None]
  - NASOPHARYNGITIS [None]
  - OPPORTUNISTIC INFECTION [None]
  - PULMONARY FIBROSIS [None]
  - RESPIRATORY DISTRESS [None]
  - WEIGHT DECREASED [None]
